FAERS Safety Report 4901675-0 (Version None)
Quarter: 2006Q1

REPORT INFORMATION
  Report Type: 
  Country: None (occurrence: None)
  Receive Date: 20060206
  Receipt Date: 20051012
  Transmission Date: 20060701
  Serious: No
  Sender: FDA-Public Use
  Company Number: US-BRISTOL-MYERS SQUIBB COMPANY-13142732

PATIENT
  Age: 70 Year
  Sex: Female
  Weight: 74 kg

DRUGS (10)
  1. TAXOL [Suspect]
     Indication: NEOPLASM
     Route: 042
  2. WARFARIN [Concomitant]
  3. ASCORBIC ACID [Concomitant]
  4. VITAMIN D [Concomitant]
  5. NEXIUM [Concomitant]
  6. OMEPRAZOLE [Concomitant]
  7. VITAMIN B6 [Concomitant]
  8. TOPROL [Concomitant]
  9. AMBIEN [Concomitant]
     Indication: INSOMNIA
  10. CENTRUM [Concomitant]

REACTIONS (8)
  - FUNGAL INFECTION [None]
  - HEADACHE [None]
  - INSOMNIA [None]
  - NECK PAIN [None]
  - NERVE INJURY [None]
  - PARAESTHESIA [None]
  - SENSATION OF FOREIGN BODY [None]
  - SPEECH DISORDER [None]
